FAERS Safety Report 5976392-9 (Version None)
Quarter: 2008Q4

REPORT INFORMATION
  Report Type: 
  Country: None (occurrence: None)
  Receive Date: 20081202
  Receipt Date: 20081121
  Transmission Date: 20090506
  Serious: Yes (Hospitalization, Other)
  Sender: FDA-Public Use
  Company Number: IT-GILEAD-2008-0018924

PATIENT
  Age: 48 Year
  Sex: Female

DRUGS (4)
  1. TRUVADA [Suspect]
     Dates: start: 20081002, end: 20081008
  2. REYATAZ [Concomitant]
     Dates: start: 20081002, end: 20081008
  3. NORVIR [Concomitant]
     Dates: start: 20081002, end: 20081008
  4. DEURSIL [Concomitant]

REACTIONS (1)
  - HAEMOLYTIC ANAEMIA [None]
